FAERS Safety Report 25642849 (Version 4)
Quarter: 2025Q3

REPORT INFORMATION
  Report Type: Spontaneous
  Country: JP (occurrence: JP)
  Receive Date: 20250805
  Receipt Date: 20250911
  Transmission Date: 20251021
  Serious: Yes (Life-Threatening, Hospitalization)
  Sender: ABBVIE
  Company Number: JP-ABBVIE-6316333

PATIENT
  Age: 70 Year
  Sex: Female

DRUGS (1)
  1. GLECAPREVIR\PIBRENTASVIR [Suspect]
     Active Substance: GLECAPREVIR\PIBRENTASVIR
     Indication: Hepatitis C
     Route: 048
     Dates: start: 20250526, end: 20250728

REACTIONS (4)
  - Dysphagia [Recovering/Resolving]
  - Cryoglobulins present [Unknown]
  - Nephropathy [Unknown]
  - Nephritis [Recovering/Resolving]

NARRATIVE: CASE EVENT DATE: 20250101
